FAERS Safety Report 11588277 (Version 1)
Quarter: 2015Q4

REPORT INFORMATION
  Report Type: Spontaneous
  Country: US (occurrence: None)
  Receive Date: 20151001
  Receipt Date: 20151001
  Transmission Date: 20160304
  Serious: Yes (Life-Threatening, Hospitalization, Disabling)
  Sender: FDA-Public Use
  Company Number: None

PATIENT
  Age: 68 Year
  Sex: Male
  Weight: 135.17 kg

DRUGS (3)
  1. ANDROGEN [Concomitant]
     Active Substance: UNSPECIFIED INGREDIENT
  2. BIPHOSPHONATE [Concomitant]
  3. RADIUM 223 [Suspect]
     Active Substance: RADIUM RA-223 DICHLORIDE
     Indication: PROSTATE CANCER METASTATIC
     Dosage: 50 KBQ/KG MONTHLY X 6 INTRAVENOUS
     Route: 042
     Dates: start: 20150129, end: 20150618

REACTIONS (3)
  - Febrile neutropenia [None]
  - Acute myeloid leukaemia [None]
  - Diarrhoea [None]

NARRATIVE: CASE EVENT DATE: 20150922
